FAERS Safety Report 25941846 (Version 2)
Quarter: 2025Q4

REPORT INFORMATION
  Report Type: Report from Study
  Country: US (occurrence: None)
  Receive Date: 20251020
  Receipt Date: 20251113
  Transmission Date: 20260117
  Serious: Yes (Hospitalization)
  Sender: UCB
  Company Number: US-UCBSA-2025054826

PATIENT
  Age: 55 Year

DRUGS (1)
  1. BIMEKIZUMAB [Suspect]
     Active Substance: BIMEKIZUMAB
     Indication: Psoriasis
     Dosage: 320 MILLIGRAM, EV 4 WEEKS

REACTIONS (10)
  - Urinary tract infection [Not Recovered/Not Resolved]
  - Dizziness [Recovering/Resolving]
  - Chest pain [Recovering/Resolving]
  - Dyspnoea [Recovering/Resolving]
  - Bradycardia [Recovering/Resolving]
  - Fatigue [Recovering/Resolving]
  - Feeling cold [Recovering/Resolving]
  - Hypotension [Recovering/Resolving]
  - Headache [Not Recovered/Not Resolved]
  - Candida infection [Unknown]
